FAERS Safety Report 26012342 (Version 1)
Quarter: 2025Q4

REPORT INFORMATION
  Report Type: Spontaneous
  Country: EU (occurrence: EU)
  Receive Date: 20251107
  Receipt Date: 20251107
  Transmission Date: 20260118
  Serious: Yes (Other)
  Sender: FRESENIUS KABI
  Company Number: None

PATIENT
  Age: 55 Year
  Sex: Male
  Weight: 112.9 kg

DRUGS (1)
  1. LINEZOLID [Suspect]
     Active Substance: LINEZOLID
     Indication: Sepsis
     Dosage: 2 TIMES PER DAY
     Route: 042
     Dates: start: 20251007, end: 20251015

REACTIONS (2)
  - Thrombocytopenia [Not Recovered/Not Resolved]
  - Condition aggravated [Not Recovered/Not Resolved]

NARRATIVE: CASE EVENT DATE: 20251010
